FAERS Safety Report 10168157 (Version 1)
Quarter: 2014Q2

REPORT INFORMATION
  Report Type: Spontaneous
  Country: US (occurrence: US)
  Receive Date: 20140512
  Receipt Date: 20140512
  Transmission Date: 20141212
  Serious: No
  Sender: FDA-Public Use
  Company Number: US-TEVA-479737USA

PATIENT
  Age: 69 Year
  Sex: Female

DRUGS (2)
  1. PROAIR HFA [Suspect]
     Indication: EMPHYSEMA
  2. SPIRIVA [Concomitant]
     Indication: EMPHYSEMA

REACTIONS (4)
  - Dry mouth [Not Recovered/Not Resolved]
  - Glossodynia [Recovered/Resolved]
  - Body height decreased [Not Recovered/Not Resolved]
  - Wrong technique in drug usage process [Not Recovered/Not Resolved]
